FAERS Safety Report 21398708 (Version 1)
Quarter: 2022Q4

REPORT INFORMATION
  Report Type: Spontaneous
  Country: US (occurrence: US)
  Receive Date: 20221001
  Receipt Date: 20221001
  Transmission Date: 20230112
  Serious: No
  Sender: FDA-Public Use
  Company Number: US-ELI_LILLY_AND_COMPANY-US202209008085

PATIENT
  Age: 69 Year
  Sex: Male

DRUGS (1)
  1. EMGALITY [Suspect]
     Active Substance: GALCANEZUMAB-GNLM
     Indication: Product used for unknown indication
     Dosage: 120 MG, MONTHLY (1/M)
     Route: 065

REACTIONS (4)
  - Skin reaction [Unknown]
  - Fall [Unknown]
  - Head injury [Unknown]
  - COVID-19 [Unknown]

NARRATIVE: CASE EVENT DATE: 20220601
